FAERS Safety Report 12715160 (Version 4)
Quarter: 2016Q4

REPORT INFORMATION
  Report Type: Spontaneous
  Country: US (occurrence: US)
  Receive Date: 20160905
  Receipt Date: 20161025
  Transmission Date: 20170207
  Serious: Yes (Hospitalization, Other)
  Sender: FDA-Public Use
  Company Number: US-BEH-2016073201

PATIENT
  Age: 78 Year
  Sex: Female
  Weight: 80.7 kg

DRUGS (1)
  1. KCENTRA [Suspect]
     Active Substance: COAGULATION FACTOR IX HUMAN\COAGULATION FACTOR VII HUMAN\COAGULATION FACTOR X HUMAN\PROTEIN C\PROTEIN S HUMAN\PROTHROMBIN
     Indication: GASTROINTESTINAL HAEMORRHAGE
     Dosage: 3000 IU, UNK AT 8.4 ML/MIN
     Route: 042
     Dates: start: 20160826, end: 20160826

REACTIONS (10)
  - Infusion site bruising [Recovering/Resolving]
  - Skin exfoliation [Recovering/Resolving]
  - Infusion site inflammation [Recovering/Resolving]
  - Pain in extremity [Recovering/Resolving]
  - Infusion site vesicles [Recovering/Resolving]
  - Burning sensation [Recovering/Resolving]
  - Administration site extravasation [Recovering/Resolving]
  - Infusion site necrosis [Recovering/Resolving]
  - Infusion site swelling [Recovering/Resolving]
  - Infusion site discolouration [Recovering/Resolving]

NARRATIVE: CASE EVENT DATE: 20160826
